FAERS Safety Report 8413961-0 (Version None)
Quarter: 2012Q2

REPORT INFORMATION
  Report Type: 
  Country: None (occurrence: None)
  Receive Date: 20120323
  Receipt Date: 20110607
  Transmission Date: 20120825
  Serious: Yes (Other)
  Sender: FDA-Public Use
  Company Number: 163-21880-11060952

PATIENT

DRUGS (3)
  1. REVLIMID [Suspect]
     Indication: CHRONIC LYMPHOCYTIC LEUKAEMIA
     Dosage: 5 MG, DAY 1-21, PO ; 10 MG, CYCLE 2, PO
     Route: 048
  2. RITUXIMAB (RITUXIMAB) [Concomitant]
  3. FLUDARABINE PHOSPHATE [Concomitant]

REACTIONS (4)
  - INFECTION [None]
  - RASH [None]
  - NEUTROPENIA [None]
  - FATIGUE [None]
